FAERS Safety Report 20008941 (Version 1)
Quarter: 2021Q4

REPORT INFORMATION
  Report Type: Spontaneous
  Country: US (occurrence: US)
  Receive Date: 20211029
  Receipt Date: 20211029
  Transmission Date: 20220303
  Serious: No
  Sender: FDA-Public Use
  Company Number: US-DRREDDYS-SPO/USA/21/0143056

PATIENT
  Age: 16 Year
  Sex: Female

DRUGS (1)
  1. ZENATANE [Suspect]
     Active Substance: ISOTRETINOIN
     Indication: Product used for unknown indication
     Dosage: RMA ISSUE DATE: 25 JUNE 2021 12:00:00 AM, 29 JULY 2021 12:00:00 AM AND 26 AUGUST 2021 12:00:00 AM.
     Dates: start: 20210625, end: 20211022

REACTIONS (1)
  - Adverse drug reaction [Unknown]
